FAERS Safety Report 4390375-4 (Version None)
Quarter: 2004Q2

REPORT INFORMATION
  Report Type: 
  Country: None (occurrence: None)
  Receive Date: 20040628
  Receipt Date: 20040615
  Transmission Date: 20050107
  Serious: Yes (Hospitalization, Other)
  Sender: FDA-Public Use
  Company Number: 2004040193

PATIENT
  Age: 72 Year
  Sex: Male

DRUGS (6)
  1. DILANTIN KAPSEAL [Suspect]
     Indication: CONVULSION
     Dosage: 400 MG (200 MG, 2 IN 1 D), ORAL
     Route: 048
  2. CYANOCOBALAMIN (CYANOCOBALAMIN) [Concomitant]
  3. PREDNISONE TAB [Concomitant]
  4. MIGLITOL (MIGLITOL) [Concomitant]
  5. TOPIRAMINE (TOPIRAMINE) [Concomitant]
  6. RANITIDINE HYDROCHLORIDE [Concomitant]

REACTIONS (1)
  - DRUG LEVEL BELOW THERAPEUTIC [None]
